FAERS Safety Report 13812249 (Version 4)
Quarter: 2018Q3

REPORT INFORMATION
  Report Type: Report from Study
  Country: US (occurrence: US)
  Receive Date: 20170728
  Receipt Date: 20180719
  Transmission Date: 20181010
  Serious: No
  Sender: FDA-Public Use
  Company Number: US-AMGEN-USASL2017100781

PATIENT
  Age: 64 Year
  Sex: Male
  Weight: 86.63 kg

DRUGS (3)
  1. REPATHA [Suspect]
     Active Substance: EVOLOCUMAB
     Indication: HYPERLIPIDAEMIA
  2. REPATHA [Suspect]
     Active Substance: EVOLOCUMAB
     Indication: ARTERIOSCLEROSIS
     Dosage: 140 MG, Q2WK
     Route: 065
  3. LISINOPRIL. [Suspect]
     Active Substance: LISINOPRIL
     Indication: PRODUCT USED FOR UNKNOWN INDICATION
     Route: 065

REACTIONS (9)
  - Hypotonia [Unknown]
  - Blood cholesterol increased [Unknown]
  - Injection site induration [Unknown]
  - Rash pruritic [Unknown]
  - Low density lipoprotein increased [Not Recovered/Not Resolved]
  - Injection site bruising [Unknown]
  - Chest pain [Unknown]
  - Injection site mass [Unknown]
  - Exfoliative rash [Unknown]

NARRATIVE: CASE EVENT DATE: 20180203
